FAERS Safety Report 11173836 (Version 1)
Quarter: 2015Q2

REPORT INFORMATION
  Report Type: Spontaneous
  Country: US (occurrence: None)
  Receive Date: 20150608
  Receipt Date: 20150608
  Transmission Date: 20150821
  Serious: Yes (Other)
  Sender: FDA-Public Use
  Company Number: None

PATIENT
  Age: 67 Year
  Sex: Female
  Weight: 61.9 kg

DRUGS (15)
  1. HARVONI [Suspect]
     Active Substance: LEDIPASVIR\SOFOSBUVIR
     Indication: HEPATITIS C
     Dosage: 1   QD  ORAL
     Route: 048
     Dates: start: 20150428
  2. ERGOCALCIFEROL. [Concomitant]
     Active Substance: ERGOCALCIFEROL
  3. METHADONE [Concomitant]
     Active Substance: METHADONE HYDROCHLORIDE
  4. LAMICTAL [Concomitant]
     Active Substance: LAMOTRIGINE
  5. MELOXICAM. [Concomitant]
     Active Substance: MELOXICAM
  6. PROLIA [Concomitant]
     Active Substance: DENOSUMAB
  7. KEFLEX [Concomitant]
     Active Substance: CEPHALEXIN
  8. CALCITRIOL. [Concomitant]
     Active Substance: CALCITRIOL
  9. ENBREL [Concomitant]
     Active Substance: ETANERCEPT
  10. KLOR-CON [Concomitant]
     Active Substance: POTASSIUM CHLORIDE
  11. MODAFINIL. [Concomitant]
     Active Substance: MODAFINIL
  12. PREDNISONE. [Concomitant]
     Active Substance: PREDNISONE
  13. EVOXAC [Concomitant]
     Active Substance: CEVIMELINE HYDROCHLORIDE
  14. FUROSEMIDE. [Concomitant]
     Active Substance: FUROSEMIDE
  15. VOLTAREN [Concomitant]
     Active Substance: DICLOFENAC SODIUM

REACTIONS (1)
  - Blood creatinine increased [None]

NARRATIVE: CASE EVENT DATE: 20150528
